FAERS Safety Report 15534277 (Version 3)
Quarter: 2018Q4

REPORT INFORMATION
  Report Type: Report from Study
  Country: US (occurrence: US)
  Receive Date: 20181021
  Receipt Date: 20181205
  Transmission Date: 20190205
  Serious: Yes (Hospitalization, Other)
  Sender: FDA-Public Use
  Company Number: US-SHIRE-US201838392

PATIENT
  Age: 61 Year
  Sex: Female

DRUGS (2)
  1. GATTEX [Suspect]
     Active Substance: TEDUGLUTIDE\WATER
     Dosage: 0.27 (UNIT UNSPECIFIED), 1X/DAY:QD
     Route: 058
     Dates: start: 20180828
  2. GATTEX [Suspect]
     Active Substance: TEDUGLUTIDE\WATER
     Indication: SHORT-BOWEL SYNDROME
     Dosage: 0.135 ML, 1X/DAY:QD
     Route: 050

REACTIONS (5)
  - Sepsis [Recovered/Resolved]
  - Heart rate decreased [Unknown]
  - Fluid overload [Unknown]
  - Fluid retention [Unknown]
  - Gastrointestinal stoma output increased [Unknown]

NARRATIVE: CASE EVENT DATE: 20180904
